FAERS Safety Report 24108586 (Version 4)
Quarter: 2024Q3

REPORT INFORMATION
  Report Type: Report from Study
  Country: MY (occurrence: MY)
  Receive Date: 20240718
  Receipt Date: 20240820
  Transmission Date: 20241016
  Serious: Yes (Hospitalization, Other)
  Sender: EMD SERONO INC
  Company Number: MY-Merck Healthcare KGaA-2024037880

PATIENT
  Age: 11 Year
  Sex: Male

DRUGS (2)
  1. SAIZEN [Suspect]
     Active Substance: SOMATROPIN
     Indication: Growth hormone deficiency
     Route: 058
     Dates: start: 20230717
  2. SAIZEN [Suspect]
     Active Substance: SOMATROPIN
     Indication: Growth failure

REACTIONS (11)
  - Heart rate increased [Unknown]
  - Dehydration [Unknown]
  - Dizziness [Unknown]
  - Vomiting [Unknown]
  - Hyperhidrosis [Unknown]
  - Neoplasm [Unknown]
  - Mobility decreased [Unknown]
  - Diarrhoea [Unknown]
  - Pain in extremity [Unknown]
  - Abdominal distension [Unknown]
  - Gastrointestinal disorder [Unknown]

NARRATIVE: CASE EVENT DATE: 20240401
